FAERS Safety Report 15048001 (Version 2)
Quarter: 2018Q4

REPORT INFORMATION
  Report Type: Other
  Country: GB (occurrence: GB)
  Receive Date: 20180622
  Receipt Date: 20180807
  Transmission Date: 20190204
  Serious: No
  Sender: FDA-Public Use
  Company Number: GB-LUPIN PHARMACEUTICALS INC.-2018-03783

PATIENT
  Age: 59 Year
  Sex: Male

DRUGS (1)
  1. LEVETIRACETAM FILM COATED TABLETS [Suspect]
     Active Substance: LEVETIRACETAM
     Indication: PRODUCT USED FOR UNKNOWN INDICATION
     Dosage: UNK
     Route: 048
     Dates: start: 2012, end: 2012

REACTIONS (1)
  - Abnormal behaviour [Unknown]
